FAERS Safety Report 18713390 (Version 1)
Quarter: 2021Q1

REPORT INFORMATION
  Report Type: Spontaneous
  Country: US (occurrence: US)
  Receive Date: 20210107
  Receipt Date: 20210107
  Transmission Date: 20210419
  Serious: Yes (Hospitalization)
  Sender: FDA-Public Use
  Company Number: NVSC2021US000857

PATIENT
  Sex: Female

DRUGS (2)
  1. IMIPRAMINE [Suspect]
     Active Substance: IMIPRAMINE
     Indication: PRODUCT USED FOR UNKNOWN INDICATION
     Dosage: 10 DF, QD (10 PILLS)
     Route: 065
  2. IMIPRAMINE [Suspect]
     Active Substance: IMIPRAMINE
     Dosage: 5 DF, QD (5 PILLS)
     Route: 065

REACTIONS (5)
  - Malaise [Unknown]
  - Withdrawal syndrome [Unknown]
  - Illness [Unknown]
  - Feeling abnormal [Unknown]
  - Product colour issue [Unknown]
